FAERS Safety Report 11127375 (Version 1)
Quarter: 2015Q2

REPORT INFORMATION
  Report Type: Report from Study
  Country: US (occurrence: None)
  Receive Date: 20150519
  Receipt Date: 20150519
  Transmission Date: 20150821
  Serious: Yes (Other)
  Sender: FDA-Public Use
  Company Number: 2015SA045756

PATIENT
  Age: 51 Year
  Sex: Female

DRUGS (5)
  1. GILENYA [Concomitant]
     Active Substance: FINGOLIMOD HYDROCHLORIDE
  2. BETASERON [Concomitant]
     Active Substance: INTERFERON BETA-1B
  3. AVONEX [Concomitant]
     Active Substance: INTERFERON BETA-1A
  4. LEMTRADA [Suspect]
     Active Substance: ALEMTUZUMAB
     Indication: MULTIPLE SCLEROSIS RELAPSE
     Route: 041
     Dates: start: 20150323, end: 20150327
  5. TECFIDERA [Concomitant]
     Active Substance: DIMETHYL FUMARATE

REACTIONS (17)
  - Frustration [None]
  - Anger [None]
  - Diarrhoea [None]
  - Vulvovaginal pruritus [None]
  - Dyspnoea [None]
  - Feeling abnormal [None]
  - Myalgia [None]
  - Dysphagia [None]
  - Urinary tract infection [None]
  - Fear [None]
  - Muscular weakness [None]
  - Speech disorder [None]
  - Hypersensitivity [None]
  - Discomfort [None]
  - Urinary incontinence [None]
  - Swollen tongue [None]
  - Condition aggravated [None]

NARRATIVE: CASE EVENT DATE: 20150408
